FAERS Safety Report 10037337 (Version 2)
Quarter: 2014Q1

REPORT INFORMATION
  Report Type: Spontaneous
  Country: IT (occurrence: IT)
  Receive Date: 20140326
  Receipt Date: 20140328
  Transmission Date: 20141002
  Serious: Yes (Hospitalization)
  Sender: FDA-Public Use
  Company Number: IT-SA-2014SA037648

PATIENT
  Age: 36 Year
  Sex: Female

DRUGS (2)
  1. LEVOFLOXACIN [Suspect]
     Indication: MENISCUS REMOVAL
     Route: 048
     Dates: start: 20140205, end: 20140209
  2. CLEXANE [Suspect]
     Indication: MENISCUS REMOVAL
     Route: 058
     Dates: start: 20140131, end: 20140209

REACTIONS (1)
  - Drug eruption [Unknown]
